FAERS Safety Report 14759376 (Version 3)
Quarter: 2018Q3

REPORT INFORMATION
  Report Type: Spontaneous
  Country: DE (occurrence: DE)
  Receive Date: 20180413
  Receipt Date: 20180727
  Transmission Date: 20181010
  Serious: Yes (Hospitalization, Other)
  Sender: FDA-Public Use
  Company Number: DE-GLAXOSMITHKLINE-DE2018062103

PATIENT
  Age: 82 Year
  Sex: Female
  Weight: 56 kg

DRUGS (31)
  1. VOLTAREN [Suspect]
     Active Substance: DICLOFENAC SODIUM
     Indication: PRODUCT USED FOR UNKNOWN INDICATION
     Dosage: 2 DF, QD
     Route: 065
     Dates: start: 201610
  2. PREDNISOLON [Suspect]
     Active Substance: PREDNISOLONE
     Indication: PRODUCT USED FOR UNKNOWN INDICATION
     Dosage: 5 MG, UNK
     Route: 065
  3. FENTANYL. [Suspect]
     Active Substance: FENTANYL
     Indication: PRODUCT USED FOR UNKNOWN INDICATION
     Dosage: 75 MICROGRAM/HOUR AND PLASTER CHANGE EVERY 3 DAYS
     Route: 062
  4. RIOPAN (MAGALDRATE) [Concomitant]
     Indication: PRODUCT USED FOR UNKNOWN INDICATION
     Dosage: 4800 MG, QD
     Route: 048
  5. HYDROCHLOROTHIAZIDE + LOSARTAN [Suspect]
     Active Substance: HYDROCHLOROTHIAZIDE\LOSARTAN
     Indication: PRODUCT USED FOR UNKNOWN INDICATION
     Dosage: 1 DF (100/25 MG), QD
     Route: 065
     Dates: start: 2016
  6. BISOHEXAL [Suspect]
     Active Substance: BISOPROLOL FUMARATE
     Indication: PRODUCT USED FOR UNKNOWN INDICATION
     Dosage: 0.5 DF, QD
     Route: 065
     Dates: start: 2016
  7. SPASMEX (TROSPIUM CHLORIDE) [Suspect]
     Active Substance: TROSPIUM CHLORIDE
     Indication: PRODUCT USED FOR UNKNOWN INDICATION
     Dosage: 15 MG, QD
     Route: 065
  8. SPIRO COMP. [Suspect]
     Active Substance: FUROSEMIDE\SPIRONOLACTONE
     Indication: PRODUCT USED FOR UNKNOWN INDICATION
     Dosage: 1 DF, QD
     Route: 065
     Dates: start: 201610
  9. FOLIC ACID. [Concomitant]
     Active Substance: FOLIC ACID
     Indication: PRODUCT USED FOR UNKNOWN INDICATION
     Dosage: 5 MG, UNK
     Route: 065
     Dates: start: 20170124
  10. ENOXAPARIN [Concomitant]
     Active Substance: ENOXAPARIN
     Indication: PRODUCT USED FOR UNKNOWN INDICATION
     Dosage: UNK
  11. SIMVASTATIN. [Suspect]
     Active Substance: SIMVASTATIN
     Indication: PRODUCT USED FOR UNKNOWN INDICATION
     Dosage: 40 MG, UNK
     Route: 065
  12. METOPROLOL SUCCINATE. [Suspect]
     Active Substance: METOPROLOL SUCCINATE
     Indication: PRODUCT USED FOR UNKNOWN INDICATION
     Dosage: 95 MG, UNK
     Route: 065
     Dates: start: 20170124
  13. VALSARTAN. [Suspect]
     Active Substance: VALSARTAN
     Indication: PRODUCT USED FOR UNKNOWN INDICATION
     Dosage: 160 MG, UNK
     Route: 065
  14. TORASEMIDE [Suspect]
     Active Substance: TORSEMIDE
     Indication: PRODUCT USED FOR UNKNOWN INDICATION
     Dosage: 5 MG, UNK
     Route: 065
  15. LIXIANA [Suspect]
     Active Substance: EDOXABAN TOSYLATE
     Indication: ATRIAL FIBRILLATION
     Dosage: 1 DF, QD
     Route: 065
     Dates: start: 20160930
  16. SPASMEX (TROSPIUM CHLORIDE) [Suspect]
     Active Substance: TROSPIUM CHLORIDE
     Dosage: 45 MG, UNK
     Route: 065
     Dates: start: 20170124
  17. HUMIRA [Suspect]
     Active Substance: ADALIMUMAB
     Indication: PRODUCT USED FOR UNKNOWN INDICATION
     Dosage: 1 DF, 2 WEEK
     Route: 058
     Dates: start: 20120111, end: 20160927
  18. FRAXIPARIN [Concomitant]
     Active Substance: NADROPARIN CALCIUM
     Indication: PRODUCT USED FOR UNKNOWN INDICATION
     Dosage: 5700 IU, QD
     Route: 058
  19. TOREM [Concomitant]
     Active Substance: TORSEMIDE
     Indication: PRODUCT USED FOR UNKNOWN INDICATION
     Dosage: 1 DF, QD
     Route: 065
  20. LEVOSIMENDAN [Concomitant]
     Active Substance: LEVOSIMENDAN
     Indication: PRODUCT USED FOR UNKNOWN INDICATION
     Dosage: FOR 1.5 DAYS
     Route: 065
     Dates: start: 201611, end: 201611
  21. CORDAREX [Concomitant]
     Active Substance: AMIODARONE
     Indication: PRODUCT USED FOR UNKNOWN INDICATION
     Dosage: 200 MG, QD
     Route: 065
  22. AMIODARONE [Suspect]
     Active Substance: AMIODARONE
     Indication: PRODUCT USED FOR UNKNOWN INDICATION
     Dosage: 200 MG, UNK
     Route: 065
  23. MOVICOL [Suspect]
     Active Substance: POLYETHYLENE GLYCOL 3350\POTASSIUM CHLORIDE\SODIUM BICARBONATE\SODIUM CHLORIDE
     Indication: PRODUCT USED FOR UNKNOWN INDICATION
     Dosage: UNK
     Route: 065
     Dates: start: 20170124
  24. CLOPIDOGREL [Suspect]
     Active Substance: CLOPIDOGREL BISULFATE
     Indication: PRODUCT USED FOR UNKNOWN INDICATION
     Dosage: UNK
     Route: 065
     Dates: start: 20170124
  25. XIPAMIDE [Suspect]
     Active Substance: XIPAMIDE
     Indication: PRODUCT USED FOR UNKNOWN INDICATION
     Dosage: 20 MG, UNK
     Route: 065
     Dates: start: 20170124
  26. HUMIRA [Suspect]
     Active Substance: ADALIMUMAB
     Dosage: 1 DF, 2 WEEK
     Route: 058
     Dates: start: 20161115
  27. BIFITERAL [Suspect]
     Active Substance: LACTULOSE
     Indication: PRODUCT USED FOR UNKNOWN INDICATION
     Dosage: UNK
     Route: 065
     Dates: start: 20170124
  28. PANTOPRAZOLE [Suspect]
     Active Substance: PANTOPRAZOLE
     Indication: PRODUCT USED FOR UNKNOWN INDICATION
     Dosage: 1 DF, UNK
     Route: 065
  29. DEKRISTOL [Suspect]
     Active Substance: CHOLECALCIFEROL
     Indication: PRODUCT USED FOR UNKNOWN INDICATION
     Dosage: 20000 IU, QW
     Route: 065
  30. ASPIRIN. [Suspect]
     Active Substance: ASPIRIN
     Indication: PRODUCT USED FOR UNKNOWN INDICATION
     Dosage: 100 MG, UNK
     Route: 065
  31. SODIUM CHLORIDE. [Concomitant]
     Active Substance: SODIUM CHLORIDE
     Indication: PRODUCT USED FOR UNKNOWN INDICATION
     Dosage: 3 DF, QD
     Route: 065

REACTIONS (53)
  - Acute kidney injury [Unknown]
  - Oedema peripheral [Unknown]
  - Vomiting [Unknown]
  - Urinary tract infection [Unknown]
  - Aortic arteriosclerosis [Unknown]
  - Syncope [Unknown]
  - Osteopenia [Unknown]
  - Pancreatic steatosis [Unknown]
  - Gait disturbance [Unknown]
  - Escherichia infection [Unknown]
  - Hyponatraemia [Unknown]
  - Myelodysplastic syndrome [Unknown]
  - Myocardial infarction [Recovered/Resolved]
  - Dyspepsia [Unknown]
  - Seroma [Unknown]
  - Coronary artery disease [Unknown]
  - Aortic valve stenosis [Unknown]
  - Cardiogenic shock [Unknown]
  - Joint dislocation [Unknown]
  - Dyspnoea [Unknown]
  - Gastrointestinal haemorrhage [Recovered/Resolved]
  - Hiatus hernia [Unknown]
  - Left ventricular dysfunction [Unknown]
  - Tachyarrhythmia [Unknown]
  - Wound dehiscence [Recovered/Resolved]
  - Anaemia [Recovered/Resolved]
  - Haemarthrosis [Unknown]
  - Femoral hernia incarcerated [Recovered/Resolved]
  - Groin pain [Unknown]
  - Diverticulum intestinal [Unknown]
  - Peripheral swelling [Unknown]
  - Abdominal discomfort [Unknown]
  - Joint dislocation [Recovered/Resolved]
  - Arterial haemorrhage [Recovered/Resolved]
  - Cardiovascular disorder [Unknown]
  - Faecaloma [Unknown]
  - Lymphatic fistula [Recovered/Resolved]
  - Mitral valve incompetence [Unknown]
  - Wound infection pseudomonas [Unknown]
  - Pulmonary hypertension [Unknown]
  - General physical health deterioration [Unknown]
  - Eructation [Unknown]
  - Tricuspid valve incompetence [Unknown]
  - Hyperkalaemia [Unknown]
  - Arthralgia [Unknown]
  - Urinary retention [Unknown]
  - Hepatic cyst [Unknown]
  - Haematuria [Unknown]
  - Decreased appetite [Unknown]
  - Anuria [Unknown]
  - Inflammatory marker increased [Recovered/Resolved]
  - Impaired healing [Unknown]
  - Postoperative wound infection [Recovered/Resolved]

NARRATIVE: CASE EVENT DATE: 201603
